FAERS Safety Report 10102917 (Version 2)
Quarter: 2014Q2

REPORT INFORMATION
  Report Type: Spontaneous
  Country: GB (occurrence: GB)
  Receive Date: 20140424
  Receipt Date: 20140620
  Transmission Date: 20141212
  Serious: Yes (Other)
  Sender: FDA-Public Use
  Company Number: PHHY2014GB046673

PATIENT
  Age: 64 Year
  Sex: Male

DRUGS (6)
  1. TAMSULOSIN [Suspect]
     Indication: PROSTATIC DISORDER
     Dosage: 400 UG
     Route: 048
     Dates: start: 20130507
  2. VESICARE [Suspect]
     Indication: MICTURITION URGENCY
     Dosage: 10 MG, QD
     Route: 048
     Dates: start: 20130625, end: 20131025
  3. VESICARE [Suspect]
     Dosage: 10 MG, UNK
     Route: 065
     Dates: start: 20131023
  4. FINASTERIDE [Concomitant]
     Indication: PROSTATIC DISORDER
     Dosage: 5 MG
     Route: 048
     Dates: start: 20130507
  5. MADOPAR [Concomitant]
     Indication: PARKINSON^S DISEASE
     Dosage: 125 MG, TID
     Route: 048
     Dates: start: 20130913
  6. SIMVASTATIN [Concomitant]
     Indication: BLOOD CHOLESTEROL
     Dosage: 40 MG, ONCE AT NIGHT
     Route: 048
     Dates: start: 20130715, end: 201309

REACTIONS (2)
  - Parkinson^s disease [Unknown]
  - Hallucination [Recovered/Resolved]
